FAERS Safety Report 4507562-4 (Version None)
Quarter: 2004Q4

REPORT INFORMATION
  Report Type: 
  Country: None (occurrence: None)
  Receive Date: 20041118
  Receipt Date: 20041111
  Transmission Date: 20050328
  Serious: Yes (Life-Threatening)
  Sender: FDA-Public Use
  Company Number: 2004-121410-NL

PATIENT
  Age: 70 Year
  Sex: Male

DRUGS (10)
  1. VECURONIUM BROMIDE [Suspect]
     Indication: HYPOTONIA
     Dosage: SEE IMAGE
     Dates: start: 20040310, end: 20040310
  2. ATROPINE SULFATE [Suspect]
     Indication: PREMEDICATION
     Dosage: 0.5 MG ONCE, INTRAMUSCULAR
     Route: 030
     Dates: start: 20040310, end: 20040310
  3. DIAZEPAM [Concomitant]
  4. SORBITOL [Concomitant]
  5. UNASYN [Concomitant]
  6. FENTANYL [Concomitant]
  7. LIDOCAINE [Concomitant]
  8. PROPOFOL [Concomitant]
  9. ROPIVACAINE [Concomitant]
  10. MIDAZOLAM [Concomitant]

REACTIONS (8)
  - ANAPHYLACTIC REACTION [None]
  - ANAPHYLACTOID SHOCK [None]
  - ECHOCARDIOGRAM ABNORMAL [None]
  - ELECTROCARDIOGRAM ST SEGMENT DEPRESSION [None]
  - ERYTHEMA [None]
  - FLUSHING [None]
  - PROCEDURAL COMPLICATION [None]
  - THERAPY NON-RESPONDER [None]
